FAERS Safety Report 7731389-3 (Version None)
Quarter: 2011Q3

REPORT INFORMATION
  Report Type: 
  Country: None (occurrence: None)
  Receive Date: 20110906
  Receipt Date: 20110901
  Transmission Date: 20111222
  Serious: Yes (Other)
  Sender: FDA-Public Use
  Company Number: US-PFIZER INC-2011130953

PATIENT
  Sex: Male

DRUGS (5)
  1. LISINOPRIL [Concomitant]
     Indication: HYPERTENSION
     Dosage: UNK
     Dates: start: 20030101
  2. IBUPROFEN [Concomitant]
     Indication: ANALGESIC THERAPY
     Dosage: UNK
     Dates: start: 20060101, end: 20080101
  3. CHANTIX [Suspect]
     Dosage: STARTER MONTH PACK AND CONTINUING MONTH PACK
     Dates: start: 20080201, end: 20080501
  4. CHANTIX [Suspect]
     Indication: SMOKING CESSATION THERAPY
     Dosage: STARTER MONTH PACK AND CONTINUING MONTH PACK
     Dates: start: 20070801, end: 20070901
  5. ACETAMINOPHEN AND HYDROCODONE BITARTRATE [Concomitant]
     Indication: ARTHRALGIA
     Dosage: UNK
     Dates: start: 20050101, end: 20080101

REACTIONS (6)
  - COGNITIVE DISORDER [None]
  - ABNORMAL DREAMS [None]
  - NIGHTMARE [None]
  - MOOD SWINGS [None]
  - DEPRESSION [None]
  - DIZZINESS [None]
